FAERS Safety Report 9334029 (Version 1)
Quarter: 2013Q2

REPORT INFORMATION
  Report Type: Spontaneous
  Country: US (occurrence: US)
  Receive Date: 20130606
  Receipt Date: 20130606
  Transmission Date: 20140414
  Serious: No
  Sender: FDA-Public Use
  Company Number: US-AMGEN-USASP2013015145

PATIENT
  Age: 83 Year
  Sex: Female

DRUGS (8)
  1. PROLIA [Suspect]
     Indication: OSTEOPOROSIS POSTMENOPAUSAL
     Dosage: 60 MG, UNK
     Dates: start: 201302
  2. COUMADIN                           /00014802/ [Concomitant]
  3. BENICAR [Concomitant]
  4. METHIMAZOLE [Concomitant]
  5. COQ10                              /00517201/ [Concomitant]
  6. VITAMIN D3 [Concomitant]
  7. CALCIUM [Concomitant]
  8. MULTIVITAMIN                       /00097801/ [Concomitant]
     Dosage: UNK
     Dates: start: 2013

REACTIONS (2)
  - Sleep disorder [Unknown]
  - Musculoskeletal pain [Unknown]
